FAERS Safety Report 5003291-1 (Version None)
Quarter: 2006Q2

REPORT INFORMATION
  Report Type: 
  Country: None (occurrence: None)
  Receive Date: 20060512
  Receipt Date: 20060502
  Transmission Date: 20061013
  Serious: No
  Sender: FDA-Public Use
  Company Number: 06H-163-0307980-00

PATIENT
  Age: 59 Year
  Sex: Male

DRUGS (8)
  1. VANCOMYCIN HYDROCHLORIDE [Suspect]
     Indication: CATHETER SITE INFECTION
     Dosage: 1 GM, 12 HR, INTRAVENOUS
     Route: 042
  2. BUSULFAN [Concomitant]
  3. FLUDARABINE [Concomitant]
  4. CAMPATH [Concomitant]
  5. CD34+ CELLS [Concomitant]
  6. METHOTREXATE [Concomitant]
  7. TACROLIMUS [Concomitant]
  8. GANCICLOVIR [Concomitant]

REACTIONS (2)
  - DELAYED ENGRAFTMENT [None]
  - GRANULOCYTOPENIA [None]
